FAERS Safety Report 7133002-5 (Version None)
Quarter: 2010Q4

REPORT INFORMATION
  Report Type: 
  Country: None (occurrence: None)
  Receive Date: 20101202
  Receipt Date: 20101123
  Transmission Date: 20110411
  Serious: Yes (Hospitalization, Disabling)
  Sender: FDA-Public Use
  Company Number: A0722342A

PATIENT
  Age: 43 Year
  Sex: Female
  Weight: 71.4 kg

DRUGS (1)
  1. AMOXICILLIN AND CLAVULANATE POTASSIUM [Suspect]
     Route: 048
     Dates: start: 20050329

REACTIONS (8)
  - BLINDNESS [None]
  - DRY MOUTH [None]
  - KERATOCONJUNCTIVITIS SICCA [None]
  - OCULAR SURFACE DISEASE [None]
  - SCAR [None]
  - STEVENS-JOHNSON SYNDROME [None]
  - SYSTEMIC LUPUS ERYTHEMATOSUS [None]
  - TOXIC EPIDERMAL NECROLYSIS [None]
